FAERS Safety Report 5646276-4 (Version None)
Quarter: 2008Q1

REPORT INFORMATION
  Report Type: 
  Country: None (occurrence: None)
  Receive Date: 20080301
  Receipt Date: 20080221
  Transmission Date: 20080703
  Serious: Yes (Hospitalization)
  Sender: FDA-Public Use
  Company Number: NL-JNJFOC-20080105947

PATIENT
  Sex: Male
  Weight: 76 kg

DRUGS (9)
  1. REMICADE [Suspect]
     Route: 042
  2. REMICADE [Suspect]
     Route: 042
  3. REMICADE [Suspect]
     Indication: CROHN'S DISEASE
     Route: 042
  4. PENTASA [Concomitant]
     Indication: CROHN'S DISEASE
  5. IMURAN [Concomitant]
     Indication: CROHN'S DISEASE
  6. PREDNISOLONE [Concomitant]
     Indication: CROHN'S DISEASE
  7. NEXIUM [Concomitant]
  8. OXYNORM [Concomitant]
     Indication: PAIN
  9. DICLOFENAC SODIUM [Concomitant]

REACTIONS (2)
  - CROHN'S DISEASE [None]
  - RECTAL CANCER [None]
